FAERS Safety Report 24104477 (Version 1)
Quarter: 2024Q3

REPORT INFORMATION
  Report Type: Spontaneous
  Country: US (occurrence: None)
  Receive Date: 20240716
  Receipt Date: 20240716
  Transmission Date: 20241016
  Serious: No
  Sender: Public
  Company Number: None

PATIENT
  Sex: Female
  Weight: 60.33 kg

DRUGS (10)
  1. XALKORI [Suspect]
     Active Substance: CRIZOTINIB
     Indication: Non-small cell lung cancer
     Dosage: 250 MG BID ORAL?
     Route: 048
     Dates: start: 20220222, end: 20240716
  2. GABAPENTIN [Concomitant]
     Active Substance: GABAPENTIN
  3. ZOLPIDEM [Concomitant]
     Active Substance: ZOLPIDEM TARTRATE
  4. METHYLPHENIDATE [Concomitant]
     Active Substance: METHYLPHENIDATE
  5. CALCIUM [Concomitant]
     Active Substance: CALCIUM
  6. CETIRIZINE [Concomitant]
     Active Substance: CETIRIZINE HYDROCHLORIDE
  7. FISH OIL [Concomitant]
     Active Substance: FISH OIL
  8. HYDROXYZINE HYDROCHLORIDE [Concomitant]
     Active Substance: HYDROXYZINE HYDROCHLORIDE
  9. VITAMINS [Concomitant]
     Active Substance: VITAMINS
  10. UNISOM PM PAIN [Concomitant]

REACTIONS (3)
  - Cardiac disorder [None]
  - Heart rate decreased [None]
  - Swelling [None]
